FAERS Safety Report 8878087 (Version 1)
Quarter: 2012Q4

REPORT INFORMATION
  Report Type: 
  Country: US (occurrence: US)
  Receive Date: 20121025
  Receipt Date: 20121025
  Transmission Date: 20130627
  Serious: No
  Sender: FDA-Public Use
  Company Number: US-AMGEN-USASP2012013507

PATIENT
  Age: 50 Year
  Sex: Female
  Weight: 58 kg

DRUGS (11)
  1. ENBREL [Suspect]
     Indication: PRODUCT USED FOR UNKNOWN INDICATION
     Dosage: 50 mg, 2 times/wk
     Route: 058
  2. PAXIL CR [Concomitant]
     Dosage: 37.5 mg, UNK
  3. OMEPRAZOLE [Concomitant]
     Dosage: 20 mg, UNK
  4. LEVOTHYROXIN [Concomitant]
     Dosage: 100 mug, UNK
  5. SEROQUEL [Concomitant]
     Dosage: 200 mg, UNK
  6. LAMICTAL [Concomitant]
     Dosage: 100 mg, UNK
  7. VITAMIN D /00107901/ [Concomitant]
     Dosage: 1000 IU, UNK
  8. MULTIVITAMIN                       /00097801/ [Concomitant]
     Dosage: UNK
  9. CALCIUM + VIT D [Concomitant]
     Dosage: UNK
  10. VITAMIN B 6 [Concomitant]
     Dosage: 500 mg, UNK
  11. FISH OIL [Concomitant]
     Dosage: UNK

REACTIONS (5)
  - Injection site swelling [Unknown]
  - Injection site erythema [Unknown]
  - Injection site pruritus [Recovered/Resolved]
  - Injection site induration [Recovered/Resolved]
  - Pharyngitis streptococcal [Unknown]
